FAERS Safety Report 4698074-6 (Version None)
Quarter: 2005Q2

REPORT INFORMATION
  Report Type: 
  Country: None (occurrence: None)
  Receive Date: 20050621
  Receipt Date: 20050608
  Transmission Date: 20051028
  Serious: Yes (Hospitalization, Other)
  Sender: FDA-Public Use
  Company Number: 2005086716

PATIENT
  Age: 79 Year
  Sex: Female
  Weight: 70 kg

DRUGS (15)
  1. SULFASALAZINE [Suspect]
     Indication: RHEUMATOID ARTHRITIS
     Dosage: 2000 MG (2 IN 1 D), ORAL
     Route: 048
     Dates: end: 20050329
  2. PREDNISONE [Suspect]
     Indication: RHEUMATOID ARTHRITIS
     Dosage: 6 MG (1 IN 1 D), ORAL
     Route: 048
     Dates: end: 20050330
  3. PRAVASTATIN [Suspect]
     Indication: ILL-DEFINED DISORDER
     Dosage: 40 MG (1 IN 1 D), ORAL
     Route: 048
     Dates: end: 20050329
  4. FOLIC ACID [Suspect]
     Indication: ILL-DEFINED DISORDER
     Dosage: 15 MG (5 MG, 3 IN 1 D), ORAL
     Route: 048
     Dates: end: 20050329
  5. CLOPIDOGREL BISULFATE [Concomitant]
  6. LYSINE (LYSINE) [Concomitant]
  7. ACETAMINOPHEN [Concomitant]
  8. MACROGOL (MACROGOL) [Concomitant]
  9. CALCIUM CARBONATE (CALCIUM CARBONATE) [Concomitant]
  10. POTASSIUM CHLORIDE [Concomitant]
  11. INOSINE MONOPHOSPHATE DISODIUM (INOSINE MONOPHOSPHATE DISODIUM) [Concomitant]
  12. OMEPRAZOLE [Concomitant]
  13. RAMIPRIL [Concomitant]
  14. FUROSEMIDE [Concomitant]
  15. NICARDIPINE (NICARDIPINE) [Concomitant]

REACTIONS (9)
  - CHOLESTASIS [None]
  - CYTOLYTIC HEPATITIS [None]
  - ECCHYMOSIS [None]
  - EPSTEIN-BARR VIRUS ANTIBODY POSITIVE [None]
  - FALL [None]
  - HERPES SIMPLEX SEROLOGY POSITIVE [None]
  - INFECTION [None]
  - PAIN [None]
  - TRAUMATIC BRAIN INJURY [None]
